FAERS Safety Report 6213763-X (Version None)
Quarter: 2009Q2

REPORT INFORMATION
  Report Type: 
  Country: None (occurrence: None)
  Receive Date: 20090602
  Receipt Date: 20090519
  Transmission Date: 20091009
  Serious: Yes (Hospitalization, Other)
  Sender: FDA-Public Use
  Company Number: 235630K09USA

PATIENT
  Age: 48 Year
  Sex: Female

DRUGS (5)
  1. REBIF [Suspect]
     Indication: MULTIPLE SCLEROSIS
     Dosage: 44 MCG, 3 IN 1 WEEKS
     Dates: start: 20070131
  2. SYNTHROID [Concomitant]
  3. BACLOFEN [Concomitant]
  4. XANAX [Concomitant]
  5. TAMOXIFEN CITRATE [Concomitant]

REACTIONS (10)
  - CONFUSIONAL STATE [None]
  - DEMENTIA [None]
  - ENCEPHALOPATHY [None]
  - HYPOTHERMIA [None]
  - MALAISE [None]
  - NAUSEA [None]
  - NERVE INJURY [None]
  - PAIN IN EXTREMITY [None]
  - UNRESPONSIVE TO STIMULI [None]
  - VOMITING [None]
